FAERS Safety Report 16037039 (Version 1)
Quarter: 2019Q1

REPORT INFORMATION
  Report Type: Spontaneous
  Country: IE (occurrence: IE)
  Receive Date: 20190305
  Receipt Date: 20190305
  Transmission Date: 20190418
  Serious: Yes (Other)
  Sender: FDA-Public Use
  Company Number: IE-PFIZER INC-2019089141

PATIENT
  Age: 34 Year
  Sex: Male
  Weight: 91 kg

DRUGS (7)
  1. SODIUM CHLORIDE. [Suspect]
     Active Substance: SODIUM CHLORIDE
     Indication: MEDICATION DILUTION
     Dosage: 6TH INFUSION OF REMICADE
     Route: 042
     Dates: start: 20180914, end: 20180914
  2. CHLORPHENAMINE [Suspect]
     Active Substance: CHLORPHENIRAMINE MALEATE
     Indication: PREMEDICATION
     Dosage: 10 MG, UNK
     Route: 042
     Dates: start: 20180914, end: 20180914
  3. REMICADE [Suspect]
     Active Substance: INFLIXIMAB
     Indication: CROHN^S DISEASE
     Dosage: DOSE: 455 MG (5MG/KG); FIRST 5 INFUSIONS
     Route: 042
     Dates: start: 20180104
  4. PARACETAMOL [Suspect]
     Active Substance: ACETAMINOPHEN
     Indication: PREMEDICATION
     Dosage: 1G
     Route: 048
     Dates: start: 20180914, end: 20180914
  5. REMICADE [Suspect]
     Active Substance: INFLIXIMAB
     Dosage: DOSE: 455 MG (5MG/KG); 6TH INFUSION OF REMICADE COMPOUNDED WITH SODIUM CHLORIDE 0.9% BP AND WATER FO
     Route: 042
     Dates: start: 20180914, end: 20180914
  6. WATER FOR INJECTION [Suspect]
     Active Substance: WATER
     Indication: MEDICATION DILUTION
     Dosage: 6TH INFUSION OF REMICADE
     Route: 042
     Dates: start: 20180914, end: 20180914
  7. HYDROCORTISONE SODIUM SUCCINATE [Suspect]
     Active Substance: HYDROCORTISONE SODIUM SUCCINATE
     Indication: PREMEDICATION
     Dosage: 100 MG, UNK
     Route: 042
     Dates: start: 20180914, end: 20180914

REACTIONS (4)
  - Flushing [Recovered/Resolved]
  - Chest discomfort [Unknown]
  - Vomiting [Recovered/Resolved]
  - Dyspnoea [Recovered/Resolved]

NARRATIVE: CASE EVENT DATE: 20180914
